FAERS Safety Report 16053047 (Version 1)
Quarter: 2019Q1

REPORT INFORMATION
  Report Type: Spontaneous
  Country: IE (occurrence: IE)
  Receive Date: 20190308
  Receipt Date: 20190308
  Transmission Date: 20190418
  Serious: Yes (Hospitalization)
  Sender: FDA-Public Use
  Company Number: IE-PFIZER INC-2019095464

PATIENT
  Age: 66 Year
  Sex: Female

DRUGS (17)
  1. SODIUM CHLORIDE. [Suspect]
     Active Substance: SODIUM CHLORIDE
     Indication: MEDICATION DILUTION
     Dosage: 175 ML, UNK(1750MG VANCOMYCIN IN 175ML)
     Dates: start: 20190130, end: 20190202
  2. WATER FOR INJECTIONS [Suspect]
     Active Substance: WATER
     Indication: MEDICATION DILUTION
     Dosage: COMPOUNDED WITH VANCOMYCIN 1750MG
     Dates: start: 20190130, end: 20190202
  3. VANCOMYCIN HCL [Suspect]
     Active Substance: VANCOMYCIN HYDROCHLORIDE
     Dosage: 1750 MG, UNK(IN 175ML NACL 0.9% LV50)
     Dates: start: 20190130, end: 20190202
  4. VANCOMYCIN HCL [Suspect]
     Active Substance: VANCOMYCIN HYDROCHLORIDE
     Dosage: 1750 MG, UNK(IN 175ML NACL 0.9% LV50)
     Dates: start: 20190130, end: 20190202
  5. SODIUM CHLORIDE. [Suspect]
     Active Substance: SODIUM CHLORIDE
     Dosage: 50 ML, UNK(2000MG CEFTRIAXONE IN 50ML NACL 0.9% SV100)
     Dates: start: 20190130, end: 20190202
  6. WATER FOR INJECTIONS [Suspect]
     Active Substance: WATER
     Dosage: COMPOUNDED WITH VANCOMYCIN 1750MG
     Dates: start: 20190130, end: 20190202
  7. ROCEPHIN [Suspect]
     Active Substance: CEFTRIAXONE SODIUM
     Dosage: 2000 MG, UNK(CEFTRIAXONE 2000MG IN 50ML NACL 0.9% SV100)
     Dates: start: 20190130, end: 20190202
  8. ROCEPHIN [Suspect]
     Active Substance: CEFTRIAXONE SODIUM
     Dosage: 2000 MG, UNK(CEFTRIAXONE 2000MG IN 50ML NACL 0.9% SV100)
     Dates: start: 20190130, end: 20190202
  9. VANCOMYCIN HCL [Suspect]
     Active Substance: VANCOMYCIN HYDROCHLORIDE
     Dosage: 1750 MG, UNK(IN 175ML NACL 0.9% LV50)
     Dates: start: 20190130, end: 20190202
  10. SODIUM CHLORIDE. [Suspect]
     Active Substance: SODIUM CHLORIDE
     Dosage: 175 ML, UNK(1750MG VANCOMYCIN IN 175ML)
     Dates: start: 20190130, end: 20190202
  11. SODIUM CHLORIDE. [Suspect]
     Active Substance: SODIUM CHLORIDE
     Dosage: 50 ML, UNK(2000MG CEFTRIAXONE IN 50ML NACL 0.9% SV100)
     Dates: start: 20190130, end: 20190202
  12. WATER FOR INJECTIONS [Suspect]
     Active Substance: WATER
     Dosage: COMPOUNDED WITH VANCOMYCIN 1750MG
     Dates: start: 20190130, end: 20190202
  13. ROCEPHIN [Suspect]
     Active Substance: CEFTRIAXONE SODIUM
     Dosage: 2000 MG, UNK(CEFTRIAXONE 2000MG IN 50ML NACL 0.9% SV100)
     Dates: start: 20190130, end: 20190202
  14. SODIUM CHLORIDE. [Suspect]
     Active Substance: SODIUM CHLORIDE
     Dosage: 175 ML, UNK(1750MG VANCOMYCIN IN 175ML)
     Dates: start: 20190130, end: 20190202
  15. SODIUM CHLORIDE. [Suspect]
     Active Substance: SODIUM CHLORIDE
     Dosage: 50 ML, UNK(2000MG CEFTRIAXONE IN 50ML NACL 0.9% SV100)
     Dates: start: 20190130, end: 20190202
  16. VANCOMYCIN HCL [Suspect]
     Active Substance: VANCOMYCIN HYDROCHLORIDE
     Dosage: 1750 MG, UNK(IN 175ML NACL 0.9% LV50)
     Dates: start: 20190130, end: 20190202
  17. ROCEPHIN [Suspect]
     Active Substance: CEFTRIAXONE SODIUM
     Dosage: 2000 MG, UNK(CEFTRIAXONE 2000MG IN 50ML NACL 0.9% SV100)
     Dates: start: 20190130, end: 20190202

REACTIONS (2)
  - Pyrexia [Recovering/Resolving]
  - Chills [Unknown]

NARRATIVE: CASE EVENT DATE: 20190202
